FAERS Safety Report 12386074 (Version 5)
Quarter: 2016Q3

REPORT INFORMATION
  Report Type: Report from Study
  Country: BE (occurrence: BE)
  Receive Date: 20160519
  Receipt Date: 20160928
  Transmission Date: 20161109
  Serious: Yes (Hospitalization)
  Sender: FDA-Public Use
  Company Number: BE-KADMON PHARMACEUTICALS, LLC-KAD201512-004629

PATIENT
  Age: 58 Year
  Sex: Female
  Weight: 78 kg

DRUGS (9)
  1. RIBAVIRIN. [Suspect]
     Active Substance: RIBAVIRIN
     Indication: HEPATITIS C
     Dosage: TABLET
     Route: 048
     Dates: start: 20151109, end: 20151209
  2. INSULIN [Concomitant]
     Active Substance: INSULIN NOS
     Indication: TYPE 2 DIABETES MELLITUS
  3. CARDIOSPIRINE [Concomitant]
  4. OMEPRAZOLE. [Concomitant]
     Active Substance: OMEPRAZOLE
  5. SPIRONOLACTONE. [Suspect]
     Active Substance: SPIRONOLACTONE
     Route: 048
  6. AMLODIPINE [Concomitant]
     Active Substance: AMLODIPINE BESYLATE
     Indication: HYPERTENSION
  7. RIBAVIRIN. [Suspect]
     Active Substance: RIBAVIRIN
     Route: 048
     Dates: start: 20151209, end: 20160222
  8. IRBESARTAN/HYDROCHLOROTHIAZIDE (KARVEA HCT) [Concomitant]
     Indication: HYPERTENSION
  9. VIEKIRAX [Suspect]
     Active Substance: OMBITASVIR\PARITAPREVIR\RITONAVIR
     Indication: HEPATITIS C
     Route: 048
     Dates: start: 20151119, end: 20160222

REACTIONS (16)
  - Dyspnoea [Recovered/Resolved]
  - Conjunctivitis [Recovered/Resolved]
  - Therapy non-responder [Unknown]
  - Pruritus [Recovered/Resolved]
  - Anaemia [Unknown]
  - Nausea [Recovered/Resolved]
  - Hyperkalaemia [Recovered/Resolved]
  - Fatigue [Unknown]
  - Dyspepsia [Recovered/Resolved]
  - Hepatic failure [Recovered/Resolved]
  - Dermatitis bullous [Unknown]
  - Dermatitis bullous [Recovered/Resolved]
  - Oedema peripheral [Unknown]
  - Back pain [Unknown]
  - Abdominal pain [Recovered/Resolved]
  - Rash [Recovered/Resolved]

NARRATIVE: CASE EVENT DATE: 20151119
